FAERS Safety Report 8042998-9 (Version None)
Quarter: 2012Q1

REPORT INFORMATION
  Report Type: 
  Country: None (occurrence: None)
  Receive Date: 20120112
  Receipt Date: 20120106
  Transmission Date: 20120608
  Serious: Yes (Other)
  Sender: FDA-Public Use
  Company Number: PHEH2012US000808

PATIENT

DRUGS (1)
  1. FANAPT [Suspect]

REACTIONS (2)
  - PSYCHOTIC DISORDER [None]
  - RHABDOMYOLYSIS [None]
